FAERS Safety Report 22288647 (Version 1)
Quarter: 2023Q2

REPORT INFORMATION
  Report Type: Spontaneous
  Country: US (occurrence: US)
  Receive Date: 20230505
  Receipt Date: 20230505
  Transmission Date: 20230722
  Serious: No
  Sender: FDA-Public Use
  Company Number: US-ARIS GLOBAL-36882

PATIENT

DRUGS (2)
  1. DEVICE [Suspect]
     Active Substance: DEVICE
     Indication: Product used for unknown indication
     Dosage: 5.53 J
     Route: 047
     Dates: start: 20221208, end: 20221208
  2. RIBOFLAVIN 5^-PHOSPHATE SODIUM [Suspect]
     Active Substance: RIBOFLAVIN 5^-PHOSPHATE SODIUM
     Indication: Product used for unknown indication
     Route: 047
     Dates: start: 20221208, end: 20221208

REACTIONS (5)
  - Device issue [Unknown]
  - Therapy interrupted [Recovered/Resolved]
  - Incorrect dose administered [Unknown]
  - Incorrect product administration duration [Unknown]
  - No adverse event [Unknown]

NARRATIVE: CASE EVENT DATE: 20221208
